FAERS Safety Report 14939772 (Version 1)
Quarter: 2018Q2

REPORT INFORMATION
  Report Type: Spontaneous
  Country: DE (occurrence: DE)
  Receive Date: 20180525
  Receipt Date: 20180525
  Transmission Date: 20180711
  Serious: Yes (Hospitalization)
  Sender: FDA-Public Use
  Company Number: IND-DE-009507513-1805DEU010250

PATIENT
  Age: 76 Year
  Sex: Female
  Weight: 65 kg

DRUGS (16)
  1. SEVREDOL [Concomitant]
     Active Substance: MORPHINE
     Dosage: 10 MG, NEED,  TABLETS
     Route: 048
  2. KEPPRA [Concomitant]
     Active Substance: LEVETIRACETAM
     Dosage: 1000 MG, 0.5-0-0.5-0, TABLET
     Route: 048
  3. MADOPAR DEPOT [Concomitant]
     Active Substance: BENSERAZIDE HYDROCHLORIDE\LEVODOPA
     Dosage: 100|25 MG, 0-0-0-2, PROLONGED-RELEASE CAPSULE
     Route: 048
  4. MIRTAZAPINE. [Concomitant]
     Active Substance: MIRTAZAPINE
     Dosage: 15 MG, 0-0-0-0.25, TABLET
     Route: 048
  5. LEVOTHYROXINE SODIUM. [Concomitant]
     Active Substance: LEVOTHYROXINE SODIUM
     Dosage: 50 MICROGRAM, 1-0-0-0, TABLET
     Route: 048
  6. VIGANTOLETTEN [Concomitant]
     Active Substance: CHOLECALCIFEROL
     Dosage: 1000 IU, 1-0-0-0, TABLET
     Route: 048
  7. ALENDRONATE SODIUM. [Suspect]
     Active Substance: ALENDRONATE SODIUM
     Dosage: 70 MG / WEEK, 1-0-0-0, TABLET
     Route: 048
  8. OMEPRAZOLE. [Concomitant]
     Active Substance: OMEPRAZOLE
     Dosage: 40 MG, 1-0-0-0, TABLET
     Route: 048
  9. MADOPAR [Concomitant]
     Active Substance: BENSERAZIDE HYDROCHLORIDE\LEVODOPA
     Dosage: 100/25 MG, 1-1-1-0, TABLET
     Route: 048
  10. ARCOXIA [Suspect]
     Active Substance: ETORICOXIB
     Dosage: 90 MG, 1-1-1-1, TABLET
     Route: 048
  11. ASPIRIN. [Suspect]
     Active Substance: ASPIRIN
     Dosage: 100 MG, 1-0-0-0, TABLET
     Route: 048
  12. PRAMIPEXOLE. [Concomitant]
     Active Substance: PRAMIPEXOLE
     Dosage: 0.18 MG, 1-1-1-0, PROLONGED-RELEASE TABLET
     Route: 048
  13. VENLAFAXINE HYDROCHLORIDE. [Concomitant]
     Active Substance: VENLAFAXINE HYDROCHLORIDE
     Dosage: 75 MG, 1-0-0-0, PROLONGED-RELEASE CAPSULE
     Route: 048
  14. BISOPROLOL [Concomitant]
     Active Substance: BISOPROLOL
     Dosage: 2.5 MG, 1-0-1-0, TABLET
     Route: 048
  15. NORSPAN (BUPRENORPHINE) [Concomitant]
     Dosage: 30 MICROGRAM, EVERY 7 DAYS, PATCH TRANSDERMALLY
     Route: 062
  16. DIPYRONE [Concomitant]
     Active Substance: DIPYRONE
     Dosage: 30 GTT, 1-1-1-0, DROPS
     Route: 048

REACTIONS (6)
  - Abdominal pain [Unknown]
  - Pain [Unknown]
  - Drug administration error [Unknown]
  - Haematemesis [Unknown]
  - Haematochezia [Unknown]
  - Nausea [Unknown]
